FAERS Safety Report 24409544 (Version 1)
Quarter: 2024Q4

REPORT INFORMATION
  Report Type: Spontaneous
  Country: CZ (occurrence: CZ)
  Receive Date: 20241008
  Receipt Date: 20241008
  Transmission Date: 20250115
  Serious: Yes (Life-Threatening, Other)
  Sender: CELLTRION
  Company Number: CZ-SUN PHARMACEUTICAL INDUSTRIES LTD-2023RR-405138

PATIENT

DRUGS (6)
  1. BEVACIZUMAB [Suspect]
     Active Substance: BEVACIZUMAB
     Indication: Triple negative breast cancer
     Dosage: FIRST-LINE TREATMENT
     Route: 065
     Dates: start: 202303
  2. FLUOROURACIL [Suspect]
     Active Substance: FLUOROURACIL
     Indication: Triple negative breast cancer
     Dosage: SECOND LINE OF TREATMENT
     Route: 065
  3. PACLITAXEL [Suspect]
     Active Substance: PACLITAXEL
     Indication: Triple negative breast cancer
     Dosage: FIRST LINE-THERAPY
     Route: 065
     Dates: start: 202103
  4. CYCLOPHOSPHAMIDE [Suspect]
     Active Substance: CYCLOPHOSPHAMIDE
     Indication: Triple negative breast cancer
     Dosage: SECOND LINE OF TREATMENT,
     Route: 065
  5. METHOTREXATE [Suspect]
     Active Substance: METHOTREXATE
     Indication: Triple negative breast cancer
     Dosage: SECOND LINE OF TREATMENT
     Route: 065
  6. DOXORUBICIN [Suspect]
     Active Substance: DOXORUBICIN
     Indication: Triple negative breast cancer
     Dosage: THIRD LINE THERAPY
     Route: 065

REACTIONS (7)
  - Neutropenia [Unknown]
  - Disease progression [Unknown]
  - Toxicity to various agents [Unknown]
  - Fatigue [Unknown]
  - Infection [Unknown]
  - Alopecia [Unknown]
  - Thrombocytopenia [Unknown]
